FAERS Safety Report 13256847 (Version 2)
Quarter: 2018Q2

REPORT INFORMATION
  Report Type: Report from Study
  Country: CA (occurrence: CA)
  Receive Date: 20170221
  Receipt Date: 20180611
  Transmission Date: 20180711
  Serious: Yes (Other)
  Sender: FDA-Public Use
  Company Number: CA-EISAI MEDICAL RESEARCH-EC-2015-009770

PATIENT
  Age: 56 Year
  Sex: Male
  Weight: 106.2 kg

DRUGS (12)
  1. VIAGARA - SILDENAFIL [Concomitant]
     Route: 048
     Dates: start: 2013
  2. CO-CITALOPRAM [Concomitant]
     Route: 048
     Dates: start: 201309
  3. NIFEDIPINE. [Concomitant]
     Active Substance: NIFEDIPINE
     Route: 048
     Dates: start: 20110906
  4. INFUFER [Concomitant]
     Route: 030
     Dates: start: 2013
  5. TESTOSTERONE CYPIDNATE [Concomitant]
  6. COLACE [Concomitant]
     Active Substance: DOCUSATE SODIUM
     Route: 048
     Dates: start: 20150113
  7. MIRAPEX [Concomitant]
     Active Substance: PRAMIPEXOLE DIHYDROCHLORIDE
     Route: 048
     Dates: start: 2007
  8. PLACEBO [Suspect]
     Active Substance: UNSPECIFIED INGREDIENT
     Indication: WEIGHT CONTROL
     Route: 048
     Dates: start: 20141009, end: 20150819
  9. DOMPERIDONE [Concomitant]
     Active Substance: DOMPERIDONE
     Route: 048
     Dates: start: 201405
  10. APO-ESOMEPRAZOLE [Concomitant]
     Active Substance: ESOMEPRAZOLE
     Route: 048
     Dates: start: 2014
  11. AVALIDE - IRBESARTAN HCT [Concomitant]
     Route: 048
     Dates: start: 20110906
  12. SANDOZ SIMVASTATIN [Concomitant]
     Route: 048
     Dates: start: 20140703

REACTIONS (1)
  - Serotonin syndrome [Recovered/Resolved]

NARRATIVE: CASE EVENT DATE: 201410
